FAERS Safety Report 5471791-6 (Version None)
Quarter: 2007Q3

REPORT INFORMATION
  Report Type: 
  Country: None (occurrence: None)
  Receive Date: 20070928
  Receipt Date: 20070525
  Transmission Date: 20080115
  Serious: No
  Sender: FDA-Public Use
  Company Number: US-BRISTOL-MYERS SQUIBB COMPANY-13793765

PATIENT
  Age: 72 Year
  Weight: 100 kg

DRUGS (9)
  1. DEFINITY [Suspect]
     Route: 048
     Dates: start: 20070525, end: 20070525
  2. PRAVACHOL [Concomitant]
     Route: 048
  3. ALTACE [Concomitant]
     Route: 048
  4. ZETIA [Concomitant]
     Route: 048
  5. DETROL LA [Concomitant]
     Route: 048
  6. LUTEIN [Concomitant]
     Route: 048
  7. ASPIRIN [Concomitant]
     Route: 048
  8. CALCIUM [Concomitant]
     Route: 048
  9. MULTI-VITAMIN [Concomitant]
     Route: 048

REACTIONS (1)
  - PRURITUS [None]
